FAERS Safety Report 10365732 (Version 2)
Quarter: 2014Q4

REPORT INFORMATION
  Report Type: Spontaneous
  Country: US (occurrence: US)
  Receive Date: 20140806
  Receipt Date: 20141002
  Transmission Date: 20150528
  Serious: Yes (Hospitalization, Other)
  Sender: FDA-Public Use
  Company Number: US-B.I. PHARMACEUTICALS,INC./RIDGEFIELD-2014-BI-35229BP

PATIENT
  Age: 64 Year
  Sex: Female
  Weight: 166.02 kg

DRUGS (2)
  1. OXYGEN. [Concomitant]
     Active Substance: OXYGEN
     Indication: PRODUCT USED FOR UNKNOWN INDICATION
     Route: 065
  2. PRADAXA [Suspect]
     Active Substance: DABIGATRAN ETEXILATE MESYLATE
     Indication: ATRIAL FIBRILLATION
     Route: 065
     Dates: end: 201302

REACTIONS (10)
  - Haemorrhagic anaemia [Unknown]
  - Urinary tract infection enterococcal [Unknown]
  - Hypokalaemia [Unknown]
  - Gastrointestinal haemorrhage [Recovered/Resolved]
  - Cerebrovascular accident [Not Recovered/Not Resolved]
  - Pneumonia [Unknown]
  - Thrombocytopenia [Not Recovered/Not Resolved]
  - Sepsis [Recovered/Resolved]
  - Back pain [Unknown]
  - Seizure [Unknown]

NARRATIVE: CASE EVENT DATE: 201302
